FAERS Safety Report 18321768 (Version 3)
Quarter: 2021Q3

REPORT INFORMATION
  Report Type: Report from Study
  Country: US (occurrence: US)
  Receive Date: 20200929
  Receipt Date: 20210728
  Transmission Date: 20211014
  Serious: No
  Sender: FDA-Public Use
  Company Number: US-SHIRE-US202031537

PATIENT
  Age: 50 Year
  Sex: Female
  Weight: 146.93 kg

DRUGS (52)
  1. MAGNESIUM [Concomitant]
     Active Substance: MAGNESIUM
     Indication: PRODUCT USED FOR UNKNOWN INDICATION
  2. NASONEX [Concomitant]
     Active Substance: MOMETASONE FUROATE
  3. TRESIBA [Concomitant]
     Active Substance: INSULIN DEGLUDEC
     Indication: PRODUCT USED FOR UNKNOWN INDICATION
  4. ONDANSETRON [Concomitant]
     Active Substance: ONDANSETRON
     Indication: PRODUCT USED FOR UNKNOWN INDICATION
  5. ZINATE [Concomitant]
     Indication: PRODUCT USED FOR UNKNOWN INDICATION
     Route: 065
  6. MUPIROCIN. [Concomitant]
     Active Substance: MUPIROCIN
  7. NYSTOP [Concomitant]
     Active Substance: NYSTATIN
  8. AFRIN [Concomitant]
     Active Substance: OXYMETAZOLINE
  9. ZINC. [Concomitant]
     Active Substance: ZINC
  10. MISOPROSTOL. [Concomitant]
     Active Substance: MISOPROSTOL
  11. LIDOCAINE/PRILOCAINE [Concomitant]
     Active Substance: LIDOCAINE\PRILOCAINE
     Indication: PRODUCT USED FOR UNKNOWN INDICATION
  12. DOXYCYCLINE. [Concomitant]
     Active Substance: DOXYCYCLINE
     Indication: PRODUCT USED FOR UNKNOWN INDICATION
  13. PLAQUENIL [HYDROXYCHLOROQUINE PHOSPHATE] [Concomitant]
     Active Substance: HYDROXYCHLOROQUINE DIPHOSPHATE
     Indication: PRODUCT USED FOR UNKNOWN INDICATION
  14. SERRATIOPEPTIDASE [Concomitant]
     Active Substance: SERRAPEPTASE
     Indication: PRODUCT USED FOR UNKNOWN INDICATION
     Route: 065
  15. IODORAL [Concomitant]
     Active Substance: IODINE\POTASSIUM IODIDE
     Indication: PRODUCT USED FOR UNKNOWN INDICATION
     Route: 065
  16. HUMULIN R [Concomitant]
     Active Substance: INSULIN HUMAN
  17. URSODIOL. [Concomitant]
     Active Substance: URSODIOL
  18. DIPHENHYDRAMINE. [Concomitant]
     Active Substance: DIPHENHYDRAMINE
     Indication: PRODUCT USED FOR UNKNOWN INDICATION
  19. LMX4 [Concomitant]
     Active Substance: LIDOCAINE
     Indication: PRODUCT USED FOR UNKNOWN INDICATION
  20. VSL#3 [Concomitant]
     Active Substance: PROBIOTICS NOS
     Indication: PRODUCT USED FOR UNKNOWN INDICATION
  21. FEXOFENADINE [Concomitant]
     Active Substance: FEXOFENADINE HYDROCHLORIDE
  22. METANX [Concomitant]
     Active Substance: LEVOMEFOLATE CALCIUM\METHYLCOBALAMIN\PYRIDOXAL PHOSPHATE ANHYDROUS
  23. DHEA [Concomitant]
     Active Substance: PRASTERONE
  24. XOLAIR [Concomitant]
     Active Substance: OMALIZUMAB
  25. HUMAN NORMAL IMMUNOGLOBULIN; LIQUID [Suspect]
     Active Substance: HUMAN IMMUNOGLOBULIN G
     Indication: IMMUNODEFICIENCY COMMON VARIABLE
     Dosage: 20 GRAM, 1/WEEK
     Route: 058
     Dates: start: 20160509
  26. LAMISIL [Concomitant]
     Active Substance: TERBINAFINE HYDROCHLORIDE
     Indication: PRODUCT USED FOR UNKNOWN INDICATION
  27. EUFLEXXA [Concomitant]
     Active Substance: HYALURONATE SODIUM
     Indication: PRODUCT USED FOR UNKNOWN INDICATION
  28. PROGESTERONE. [Concomitant]
     Active Substance: PROGESTERONE
     Indication: PRODUCT USED FOR UNKNOWN INDICATION
     Route: 065
  29. ALLOPURINOL. [Concomitant]
     Active Substance: ALLOPURINOL
  30. MODAFINIL. [Concomitant]
     Active Substance: MODAFINIL
  31. OMEGA?3 FISH OIL [Concomitant]
     Active Substance: FISH OIL\OMEGA-3 FATTY ACIDS
  32. NAC [Concomitant]
  33. NATTOKINASE [Concomitant]
     Active Substance: NATTOKINASE
     Indication: PRODUCT USED FOR UNKNOWN INDICATION
     Route: 065
  34. PSEUDOEPHEDRINE. [Concomitant]
     Active Substance: PSEUDOEPHEDRINE HYDROCHLORIDE
  35. INOSITOL [Concomitant]
     Active Substance: INOSITOL
  36. TURMERIC [Concomitant]
     Active Substance: HERBALS\TURMERIC
  37. OREGANO LEAF OIL. [Concomitant]
     Active Substance: OREGANO LEAF OIL
  38. OLIVE LEAF EXTRACT [Concomitant]
  39. THYROID [Concomitant]
     Active Substance: LEVOTHYROXINE\LIOTHYRONINE
  40. HYDROCORTISONE. [Concomitant]
     Active Substance: HYDROCORTISONE
  41. SAME [ADEMETIONINE 1,4?BUTANEDISULFONATE] [Concomitant]
     Indication: PRODUCT USED FOR UNKNOWN INDICATION
  42. METAXALONE. [Concomitant]
     Active Substance: METAXALONE
  43. COCONUT OIL [Concomitant]
     Active Substance: COCONUT OIL
  44. SPIRONOLACTONE. [Concomitant]
     Active Substance: SPIRONOLACTONE
  45. ACETAMINOPHEN. [Concomitant]
     Active Substance: ACETAMINOPHEN
     Indication: PRODUCT USED FOR UNKNOWN INDICATION
  46. EPINEPHRINE. [Concomitant]
     Active Substance: EPINEPHRINE
     Indication: PRODUCT USED FOR UNKNOWN INDICATION
  47. BYETTA [Concomitant]
     Active Substance: EXENATIDE
     Indication: PRODUCT USED FOR UNKNOWN INDICATION
  48. TORSEMIDE. [Concomitant]
     Active Substance: TORSEMIDE
  49. VITAMIN D3 [Concomitant]
     Active Substance: CHOLECALCIFEROL
  50. DURAGESIC [Concomitant]
     Active Substance: FENTANYL
  51. CHROMIUM [Concomitant]
     Active Substance: CHROMIC CHLORIDE\CHROMIUM
  52. ENDOCET [Concomitant]
     Active Substance: ACETAMINOPHEN\OXYCODONE HYDROCHLORIDE

REACTIONS (2)
  - Infusion site pain [Unknown]
  - Sinusitis [Unknown]

NARRATIVE: CASE EVENT DATE: 202101
